FAERS Safety Report 4335613-9 (Version None)
Quarter: 2004Q2

REPORT INFORMATION
  Report Type: 
  Country: None (occurrence: None)
  Receive Date: 20040406
  Receipt Date: 20040330
  Transmission Date: 20050107
  Serious: Yes (Other)
  Sender: FDA-Public Use
  Company Number: 2004198994US

PATIENT
  Age: 71 Year
  Sex: Female

DRUGS (1)
  1. CAMPTOSAR [Suspect]
     Dates: start: 20020401, end: 20040201

REACTIONS (2)
  - RETINAL VEIN OCCLUSION [None]
  - THROMBOSIS [None]
